FAERS Safety Report 8334865-8 (Version None)
Quarter: 2012Q2

REPORT INFORMATION
  Report Type: 
  Country: None (occurrence: None)
  Receive Date: 20120503
  Receipt Date: 20120424
  Transmission Date: 20120825
  Serious: Yes (Other)
  Sender: FDA-Public Use
  Company Number: US-JNJFOC-20120411511

PATIENT
  Sex: Female
  Weight: 67.13 kg

DRUGS (2)
  1. BONE JOINT GELATIN [Suspect]
     Indication: ARTHROPATHY
     Route: 065
     Dates: start: 20110101
  2. STELARA [Suspect]
     Indication: PSORIASIS
     Route: 058
     Dates: start: 20110101

REACTIONS (3)
  - ARTHROPATHY [None]
  - ARTHRALGIA [None]
  - GAIT DISTURBANCE [None]
